FAERS Safety Report 24083311 (Version 1)
Quarter: 2024Q3

REPORT INFORMATION
  Report Type: Spontaneous
  Country: SE (occurrence: SE)
  Receive Date: 20240712
  Receipt Date: 20240712
  Transmission Date: 20241017
  Serious: Yes (Other)
  Sender: JOHNSON AND JOHNSON
  Company Number: SE-JNJFOC-20240724730

PATIENT
  Age: 46 Year
  Sex: Female

DRUGS (2)
  1. IBUPROFEN [Suspect]
     Active Substance: IBUPROFEN
     Indication: Arthralgia
     Route: 048
     Dates: start: 19850726, end: 19850805
  2. CHLORZOXAZONE;IBUPROFEN [Concomitant]
     Indication: Arthralgia
     Route: 048
     Dates: start: 19850726, end: 19850805

REACTIONS (3)
  - Deafness [Recovered/Resolved]
  - Gastric ulcer [Recovered/Resolved]
  - Visual impairment [Recovered/Resolved]

NARRATIVE: CASE EVENT DATE: 19850730
